FAERS Safety Report 8907932 (Version 2)
Quarter: 2012Q4

REPORT INFORMATION
  Report Type: Report from Study
  Country: US (occurrence: US)
  Receive Date: 20121114
  Receipt Date: 20121224
  Transmission Date: 20130627
  Serious: Yes (Hospitalization, Other)
  Sender: FDA-Public Use
  Company Number: US-BRISTOL-MYERS SQUIBB COMPANY-17096850

PATIENT
  Age: 60 Year
  Sex: Female
  Weight: 66 kg

DRUGS (2)
  1. IPILIMUMAB [Suspect]
     Indication: MALIGNANT MELANOMA
     Dosage: Courses:2
     Route: 042
     Dates: start: 20120723, end: 20120813
  2. LOVENOX [Suspect]
     Indication: PULMONARY EMBOLISM

REACTIONS (3)
  - Large intestinal haemorrhage [Recovering/Resolving]
  - Pulmonary embolism [Recovering/Resolving]
  - Embolism [Recovering/Resolving]
